FAERS Safety Report 11870956 (Version 1)
Quarter: 2015Q4

REPORT INFORMATION
  Report Type: Spontaneous
  Country: US (occurrence: None)
  Receive Date: 20151224
  Receipt Date: 20151224
  Transmission Date: 20160305
  Serious: No
  Sender: FDA-Public Use
  Company Number: None

PATIENT
  Age: 40 Year
  Sex: Female

DRUGS (1)
  1. ISOVUE [Suspect]
     Active Substance: IOPAMIDOL
     Indication: COMPUTERISED TOMOGRAM
     Dosage: 70ML (76 % SOLUTION)
     Route: 042
     Dates: start: 20150812, end: 20150812

REACTIONS (2)
  - Oropharyngeal discomfort [None]
  - Eye pruritus [None]

NARRATIVE: CASE EVENT DATE: 20150812
